FAERS Safety Report 17546051 (Version 1)
Quarter: 2020Q1

REPORT INFORMATION
  Report Type: Spontaneous
  Country: FR (occurrence: FR)
  Receive Date: 20200316
  Receipt Date: 20200316
  Transmission Date: 20200409
  Serious: Yes (Death)
  Sender: FDA-Public Use
  Company Number: FR-ASTRAZENECA-2020SE37067

PATIENT
  Age: 79 Year
  Sex: Male
  Weight: 80 kg

DRUGS (12)
  1. ALFUZOSINE (CHLORHYDRATE) [Concomitant]
  2. BISOCE [Concomitant]
     Active Substance: BISOPROLOL
  3. PANTOPRAZOLE [Concomitant]
     Active Substance: PANTOPRAZOLE
  4. ATORVASTATINE [Concomitant]
     Active Substance: ATORVASTATIN
  5. IMOVANE [Concomitant]
     Active Substance: ZOPICLONE
     Route: 048
  6. FUROSEMIDE. [Concomitant]
     Active Substance: FUROSEMIDE
  7. KAYEXALATE [Concomitant]
     Active Substance: SODIUM POLYSTYRENE SULFONATE
  8. BRILIQUE [Suspect]
     Active Substance: TICAGRELOR
     Indication: STENT PLACEMENT
     Route: 048
     Dates: start: 20181114
  9. KARDEGIC [Suspect]
     Active Substance: ASPIRIN DL-LYSINE
     Indication: STENT PLACEMENT
     Route: 048
     Dates: start: 201901
  10. IKOREL [Concomitant]
     Active Substance: NICORANDIL
  11. NOVORAPID [Concomitant]
     Active Substance: INSULIN ASPART
  12. LANTUS [Concomitant]
     Active Substance: INSULIN GLARGINE

REACTIONS (2)
  - Anaemia [Fatal]
  - Epistaxis [Fatal]

NARRATIVE: CASE EVENT DATE: 20190114
